FAERS Safety Report 11508797 (Version 1)
Quarter: 2015Q3

REPORT INFORMATION
  Report Type: Spontaneous
  Country: US (occurrence: US)
  Receive Date: 20150903
  Receipt Date: 20150903
  Transmission Date: 20151125
  Serious: No
  Sender: FDA-Public Use
  Company Number: US-ELI_LILLY_AND_COMPANY-US201002000472

PATIENT
  Age: 58 Year
  Sex: Female
  Weight: 104.31 kg

DRUGS (5)
  1. BYETTA [Concomitant]
     Active Substance: EXENATIDE
     Dosage: 5 D/F, UNKNOWN
     Dates: start: 200912
  2. BYETTA [Concomitant]
     Active Substance: EXENATIDE
     Dosage: 10 D/F, UNKNOWN
     Dates: start: 2005
  3. BYETTA [Concomitant]
     Active Substance: EXENATIDE
     Indication: TYPE 2 DIABETES MELLITUS
     Dosage: 5 D/F, UNKNOWN
     Dates: start: 2005
  4. BYETTA [Concomitant]
     Active Substance: EXENATIDE
     Dosage: 10 D/F, UNKNOWN
     Dates: start: 20100101
  5. HUMALOG [Suspect]
     Active Substance: INSULIN LISPRO
     Indication: TYPE 2 DIABETES MELLITUS
     Dosage: 5 U, 2/D
     Dates: start: 20091228, end: 20100101

REACTIONS (5)
  - Nausea [Recovered/Resolved]
  - Diarrhoea [Recovered/Resolved]
  - Malaise [Recovered/Resolved]
  - Withdrawal syndrome [Recovered/Resolved]
  - Blood glucose increased [Recovered/Resolved]

NARRATIVE: CASE EVENT DATE: 20091228
